FAERS Safety Report 4748085-7 (Version None)
Quarter: 2005Q3

REPORT INFORMATION
  Report Type: 
  Country: None (occurrence: None)
  Receive Date: 20050818
  Receipt Date: 20050310
  Transmission Date: 20060218
  Serious: Yes (Hospitalization, Disabling, Other)
  Sender: FDA-Public Use
  Company Number: US-MERCK-0503USA02315

PATIENT
  Age: 65 Year
  Sex: Male
  Weight: 81 kg

DRUGS (19)
  1. VIOXX [Suspect]
     Indication: ARTHRALGIA
     Route: 048
     Dates: start: 20011024, end: 20041001
  2. VIOXX [Suspect]
     Route: 065
  3. HYDROXYCHLOROQUINE SULFATE [Concomitant]
     Route: 065
  4. ATENOLOL [Concomitant]
     Route: 065
     Dates: start: 20040304
  5. OMEPRAZOLE [Concomitant]
     Route: 065
  6. FLUOCINONIDE [Concomitant]
     Route: 065
  7. TRIAMCINOLONE [Concomitant]
     Route: 065
  8. SULFAMETHOXAZOLE [Concomitant]
     Route: 065
  9. METHYLPREDNISOLONE [Concomitant]
     Route: 065
  10. METRONIDAZOLE [Concomitant]
     Route: 065
  11. RABEPRAZOLE SODIUM [Concomitant]
     Route: 065
  12. ZANTAC [Concomitant]
     Route: 065
  13. SILDENAFIL CITRATE [Concomitant]
     Route: 065
  14. ALBUTEROL [Concomitant]
     Route: 065
  15. CAPSAICIN [Concomitant]
     Route: 065
  16. FERROUS SULFATE [Concomitant]
     Route: 065
  17. IPRATROPIUM BROMIDE [Concomitant]
     Route: 065
  18. NIFEDIPINE [Concomitant]
     Route: 065
     Dates: start: 19980122, end: 20010901
  19. RAMIPRIL [Concomitant]
     Route: 065

REACTIONS (16)
  - ANAEMIA POSTOPERATIVE [None]
  - BLOOD CHOLESTEROL INCREASED [None]
  - BRADYARRHYTHMIA [None]
  - CARDIAC DISORDER [None]
  - CORONARY ARTERY DISEASE [None]
  - DYSPNOEA [None]
  - HEADACHE [None]
  - HYPERAEMIA [None]
  - HYPERTENSION [None]
  - IRRITABLE BOWEL SYNDROME [None]
  - MYOCARDIAL INFARCTION [None]
  - OESOPHAGEAL DISORDER [None]
  - PNEUMOTHORAX [None]
  - SICK SINUS SYNDROME [None]
  - SLEEP DISORDER [None]
  - ULCER [None]
